FAERS Safety Report 14203360 (Version 2)
Quarter: 2017Q4

REPORT INFORMATION
  Report Type: Spontaneous
  Country: LV (occurrence: LV)
  Receive Date: 20171120
  Receipt Date: 20171130
  Transmission Date: 20180321
  Serious: Yes (Other)
  Sender: FDA-Public Use
  Company Number: LV-ROCHE-2024890

PATIENT
  Age: 31 Year
  Sex: Female

DRUGS (10)
  1. OMALIZUMAB. [Suspect]
     Active Substance: OMALIZUMAB
     Indication: ANGIOEDEMA
     Route: 058
     Dates: start: 20160710, end: 20160710
  2. OMALIZUMAB. [Suspect]
     Active Substance: OMALIZUMAB
     Indication: URTICARIA CHRONIC
     Route: 058
     Dates: start: 20160517, end: 20160517
  3. OMALIZUMAB. [Suspect]
     Active Substance: OMALIZUMAB
     Route: 058
     Dates: start: 20161111, end: 20161111
  4. OMALIZUMAB. [Suspect]
     Active Substance: OMALIZUMAB
     Route: 058
     Dates: start: 201707
  5. OMALIZUMAB. [Suspect]
     Active Substance: OMALIZUMAB
     Route: 058
     Dates: start: 20160715, end: 20160715
  6. OMALIZUMAB. [Suspect]
     Active Substance: OMALIZUMAB
     Route: 058
     Dates: start: 20160909, end: 20160909
  7. METHYLPREDNISOLONE. [Concomitant]
     Active Substance: METHYLPREDNISOLONE
     Indication: URTICARIA
     Route: 065
     Dates: start: 20140309
  8. OMALIZUMAB. [Suspect]
     Active Substance: OMALIZUMAB
     Route: 058
     Dates: start: 20161209, end: 20161209
  9. METHYLPREDNISOLONE. [Concomitant]
     Active Substance: METHYLPREDNISOLONE
     Indication: ANGIOEDEMA
  10. OMALIZUMAB. [Suspect]
     Active Substance: OMALIZUMAB
     Route: 058
     Dates: start: 20161007, end: 20161007

REACTIONS (11)
  - Sensory loss [Recovering/Resolving]
  - Dysphonia [Unknown]
  - Asphyxia [Unknown]
  - Disease recurrence [Unknown]
  - Myalgia [Recovering/Resolving]
  - Oedema peripheral [Recovered/Resolved]
  - Arthralgia [Recovering/Resolving]
  - Subcutaneous haematoma [Unknown]
  - Angioedema [Unknown]
  - Urticaria [Recovered/Resolved]
  - Rash [Recovered/Resolved]

NARRATIVE: CASE EVENT DATE: 201607
